FAERS Safety Report 9983665 (Version 2)
Quarter: 2014Q1

REPORT INFORMATION
  Report Type: Spontaneous
  Country: US (occurrence: US)
  Receive Date: 20140307
  Receipt Date: 20140307
  Transmission Date: 20141002
  Serious: No
  Sender: FDA-Public Use
  Company Number: US-TEVA-453432USA

PATIENT
  Age: 83 Year
  Sex: Female

DRUGS (1)
  1. ETODOLAC ER [Suspect]
     Indication: ARTHRITIS
     Dates: start: 20131219

REACTIONS (7)
  - Drug ineffective [Unknown]
  - Hypokinesia [Unknown]
  - Musculoskeletal stiffness [Unknown]
  - Pain [Unknown]
  - Gait disturbance [Unknown]
  - Malaise [Unknown]
  - Incorrect dose administered [Unknown]
